FAERS Safety Report 10774769 (Version 1)
Quarter: 2015Q1

REPORT INFORMATION
  Report Type: Spontaneous
  Country: US (occurrence: None)
  Receive Date: 20150206
  Receipt Date: 20150206
  Transmission Date: 20150721
  Serious: Yes (Hospitalization)
  Sender: FDA-Public Use
  Company Number: HYP201406-000034

PATIENT
  Age: 3 Year
  Sex: Female
  Weight: 13.4 kg

DRUGS (1)
  1. RAVICTI [Suspect]
     Active Substance: GLYCEROL PHENYLBUTYRATE
     Indication: UREA CYCLE ENZYME DEFICIENCY
     Dates: start: 201310

REACTIONS (3)
  - Vomiting [None]
  - Metabolic acidosis [None]
  - Hyperammonaemic crisis [None]

NARRATIVE: CASE EVENT DATE: 20140609
